FAERS Safety Report 8772398 (Version 1)
Quarter: 2012Q4

REPORT INFORMATION
  Report Type: 
  Country: US (occurrence: US)
  Receive Date: 20120906
  Receipt Date: 20120906
  Transmission Date: 20130627
  Serious: Yes (Hospitalization)
  Sender: FDA-Public Use
  Company Number: US-BAYER-2012-091132

PATIENT
  Age: 38 Year
  Sex: Female
  Weight: 85.71 kg

DRUGS (24)
  1. YASMIN [Suspect]
     Indication: CONTRACEPTION
  2. YAZ [Suspect]
  3. AVELOX [Concomitant]
     Dosage: 400 mg, UNK
     Route: 048
  4. MEFENAMIC ACID [Concomitant]
     Dosage: 250 mg, UNK
     Route: 048
  5. ENDOCET [Concomitant]
     Dosage: 5-325 mg
     Route: 048
  6. AMOXICILLIN [Concomitant]
     Dosage: 875 mg, UNK
     Route: 048
  7. CLARITHROMYCIN [Concomitant]
     Dosage: 500 mg, UNK
     Route: 048
  8. PROAIR HFA [Concomitant]
     Route: 045
  9. LEVAQUIN [Concomitant]
     Dosage: 500 mg, UNK
     Route: 048
  10. METHYLPREDNISOLONE [Concomitant]
     Dosage: 4 mg, UNK
     Route: 048
  11. ATENOLOL [Concomitant]
     Dosage: 100 mg, UNK
     Route: 048
  12. TUSSIONEX [Concomitant]
     Route: 048
  13. HYDROMET SYRUP [Concomitant]
     Route: 048
  14. CEFDINIR [Concomitant]
     Dosage: 300 mg, UNK
     Route: 048
  15. PROPOXYPHENE NAPSYLATE W/ACETAMINOPHENE [Concomitant]
     Dosage: 100-650
     Route: 048
  16. DOC-Q-LACE [Concomitant]
     Dosage: 100 mg, UNK
     Route: 048
  17. SINGULAIR [Concomitant]
     Dosage: 10 mg, UNK
     Route: 048
  18. HYDROCHLOROTHIAZIDE [Concomitant]
     Dosage: 50 mg, UNK
     Route: 048
  19. ADVAIR DISKUS [Concomitant]
     Dosage: 100-50
  20. PROMETHAZINE [Concomitant]
     Dosage: 25 mg, UNK
     Route: 048
  21. TRICHLORMETHIAZIDE [Concomitant]
  22. ADVAIR [Concomitant]
  23. TENORMIN [Concomitant]
  24. TRIAMTERENE AND HYDROCHLOROTHIAZIDE [Concomitant]

REACTIONS (2)
  - Pulmonary embolism [Recovered/Resolved]
  - Deep vein thrombosis [Recovered/Resolved]
